FAERS Safety Report 8257802-3 (Version None)
Quarter: 2012Q2

REPORT INFORMATION
  Report Type: 
  Country: None (occurrence: None)
  Receive Date: 20120404
  Receipt Date: 20120326
  Transmission Date: 20120825
  Serious: No
  Sender: FDA-Public Use
  Company Number: US-BIOGENIDEC-2012BI010778

PATIENT
  Age: 22 Year
  Sex: Female

DRUGS (1)
  1. TYSABRI [Suspect]
     Indication: MULTIPLE SCLEROSIS
     Route: 042
     Dates: start: 20100414

REACTIONS (6)
  - PAIN [None]
  - BLOOD BILIRUBIN ABNORMAL [None]
  - MUSCULOSKELETAL DISORDER [None]
  - ABNORMAL LOSS OF WEIGHT [None]
  - INCONTINENCE [None]
  - JAUNDICE [None]
